FAERS Safety Report 17324186 (Version 1)
Quarter: 2020Q1

REPORT INFORMATION
  Report Type: Spontaneous
  Country: US (occurrence: US)
  Receive Date: 20200127
  Receipt Date: 20200127
  Transmission Date: 20200409
  Serious: No
  Sender: FDA-Public Use
  Company Number: US-GLAXOSMITHKLINE-US2020012664

PATIENT
  Age: 31 Year
  Sex: Female

DRUGS (2)
  1. MEMBERS MARK NICOTINE [Suspect]
     Active Substance: NICOTINE
     Indication: SMOKING CESSATION THERAPY
     Dosage: UNK (1 PATCH)
     Dates: start: 20200120
  2. MEMBERS MARK NICOTINE [Suspect]
     Active Substance: NICOTINE
     Dosage: 1 UNK
     Dates: start: 20200120

REACTIONS (1)
  - Muscle twitching [Not Recovered/Not Resolved]

NARRATIVE: CASE EVENT DATE: 20200120
